FAERS Safety Report 4431551-1 (Version None)
Quarter: 2004Q3

REPORT INFORMATION
  Report Type: 
  Country: None (occurrence: None)
  Receive Date: 20040824
  Receipt Date: 20040817
  Transmission Date: 20050211
  Serious: Yes (Hospitalization)
  Sender: FDA-Public Use
  Company Number: AU-MERCK-0408AUS00067

PATIENT
  Age: 68 Year
  Sex: Female

DRUGS (8)
  1. ACETAMINOPHEN [Concomitant]
     Route: 065
  2. FOSAMAX [Suspect]
     Route: 048
     Dates: start: 20040701, end: 20040811
  3. CELECOXIB [Concomitant]
     Route: 065
  4. VASOTEC [Concomitant]
     Route: 048
  5. LEVOTHYROXINE SODIUM [Concomitant]
     Route: 065
  6. METOPROLOL [Suspect]
     Route: 065
     Dates: start: 20040801
  7. OMEPRAZOLE MAGNESIUM [Concomitant]
     Route: 065
  8. QUININE [Concomitant]
     Route: 065

REACTIONS (13)
  - CHEST DISCOMFORT [None]
  - DYSPEPSIA [None]
  - ERUCTATION [None]
  - FLATULENCE [None]
  - HEADACHE [None]
  - HEART RATE DECREASED [None]
  - HYPOTENSION [None]
  - INFLUENZA LIKE ILLNESS [None]
  - LABORATORY TEST ABNORMAL [None]
  - MYALGIA [None]
  - NAUSEA [None]
  - OVERDOSE [None]
  - TACHYCARDIA [None]
